FAERS Safety Report 4296933-X (Version None)
Quarter: 2004Q1

REPORT INFORMATION
  Report Type: 
  Country: None (occurrence: None)
  Receive Date: 20040126
  Receipt Date: 20030822
  Transmission Date: 20041129
  Serious: No
  Sender: FDA-Public Use
  Company Number: USA030845115

PATIENT
  Age: 12 Year
  Sex: Male
  Weight: 41 kg

DRUGS (6)
  1. STRATTERA [Suspect]
     Dates: start: 20030816
  2. PREDNISONE [Concomitant]
  3. PULMICORT [Concomitant]
  4. IPRATROPIUM BROMIDE [Concomitant]
  5. XOPENEX [Concomitant]
  6. ALBUTEROL [Concomitant]

REACTIONS (2)
  - ASTHMA [None]
  - TIC [None]
